FAERS Safety Report 24391679 (Version 1)
Quarter: 2024Q4

REPORT INFORMATION
  Report Type: Spontaneous
  Country: US (occurrence: US)
  Receive Date: 20241003
  Receipt Date: 20241003
  Transmission Date: 20250115
  Serious: Yes (Other)
  Sender: MYLAN
  Company Number: US-MYLANLABS-2024M1087660

PATIENT
  Age: 14 Year
  Sex: Male

DRUGS (8)
  1. PREDNISONE [Suspect]
     Active Substance: PREDNISONE
     Indication: Eosinophilic oesophagitis
     Dosage: 2 MILLIGRAM/KILOGRAM, QD (RECEIVED WITH A 10?WEEK TAPER)
     Route: 048
  2. BUDESONIDE [Suspect]
     Active Substance: BUDESONIDE
     Indication: Eosinophilic oesophagitis
     Dosage: 1 MILLIGRAM, BID (SLURRY)
     Route: 065
  3. PREDNISOLONE [Suspect]
     Active Substance: PREDNISOLONE
     Indication: Eosinophilic oesophagitis
     Dosage: 40 MILLIGRAM, QD
     Route: 065
  4. PREDNISOLONE [Suspect]
     Active Substance: PREDNISOLONE
     Dosage: 60 MILLIGRAM, QD (RECEIVED FOR ONE WEEK)
     Route: 065
  5. PREDNISOLONE [Suspect]
     Active Substance: PREDNISOLONE
     Dosage: 40 MILLIGRAM (RECEIVED FOR 4?WEEK FOLLOWED BY TAPER OVER SIX WEEK)
     Route: 065
  6. FLUTICASONE [Suspect]
     Active Substance: FLUTICASONE
     Indication: Eosinophilic oesophagitis
     Dosage: 220 MILLIGRAM (RESPIRATORY)
     Route: 055
  7. FLUTICASONE [Suspect]
     Active Substance: FLUTICASONE
     Dosage: 220 MILLIGRAM (TWO PUFFS TWICE DAILY) RESPIRATORY
     Route: 055
  8. OMEPRAZOLE [Suspect]
     Active Substance: OMEPRAZOLE
     Indication: Eosinophilic oesophagitis
     Dosage: 40 MILLIGRAM, BID
     Route: 065

REACTIONS (1)
  - Drug ineffective [Unknown]
